FAERS Safety Report 15833402 (Version 2)
Quarter: 2019Q1

REPORT INFORMATION
  Report Type: Spontaneous
  Country: US (occurrence: US)
  Receive Date: 20190116
  Receipt Date: 20190319
  Transmission Date: 20190417
  Serious: Yes (Hospitalization, Other)
  Sender: FDA-Public Use
  Company Number: US-009507513-1901USA003937

PATIENT
  Age: 75 Year
  Sex: Male

DRUGS (3)
  1. MIRALAX [Concomitant]
     Active Substance: POLYETHYLENE GLYCOL 3350
     Indication: COLONOSCOPY
     Dosage: UNK
     Dates: start: 201809
  2. KEYTRUDA [Suspect]
     Active Substance: PEMBROLIZUMAB
     Indication: METASTATIC MALIGNANT MELANOMA
     Dosage: EVERY 3 WEEKS, UNK
     Dates: start: 201705, end: 201805
  3. GATORADE [Concomitant]
     Active Substance: CARBOHYDRATES\ELECTROLYTES NOS\VITAMINS
     Indication: COLONOSCOPY
     Dosage: UNK
     Dates: start: 201809

REACTIONS (5)
  - Gingivitis [Unknown]
  - Loss of consciousness [Recovered/Resolved]
  - Thyroid disorder [Unknown]
  - Type 1 diabetes mellitus [Unknown]
  - Dry eye [Unknown]

NARRATIVE: CASE EVENT DATE: 20180908
